FAERS Safety Report 4606936-0 (Version None)
Quarter: 2005Q1

REPORT INFORMATION
  Report Type: 
  Country: None (occurrence: None)
  Receive Date: 20050309
  Receipt Date: 20050225
  Transmission Date: 20050727
  Serious: Yes (Death)
  Sender: FDA-Public Use
  Company Number: 2015383

PATIENT
  Age: 2 Year
  Sex: Female
  Weight: 12.2 kg

DRUGS (1)
  1. OXYCODONE HCL [Suspect]
     Dosage: MG, ORAL
     Route: 048

REACTIONS (22)
  - ABDOMINAL PAIN [None]
  - ANAEMIA [None]
  - ASTHMA [None]
  - BLOOD CHLORIDE INCREASED [None]
  - BLOOD GLUCOSE DECREASED [None]
  - BLOOD IMMUNOGLOBULIN E INCREASED [None]
  - BLOOD LEAD INCREASED [None]
  - BLOOD POTASSIUM INCREASED [None]
  - BLOOD SODIUM DECREASED [None]
  - BRONCHOPNEUMONIA [None]
  - CARDIO-RESPIRATORY ARREST [None]
  - CARDIOMEGALY [None]
  - COMA [None]
  - CONTUSION [None]
  - COORDINATION ABNORMAL [None]
  - DRUG TOXICITY [None]
  - EXCORIATION [None]
  - FATIGUE [None]
  - HAEMORRHAGE [None]
  - ORAL DISCOMFORT [None]
  - OVERDOSE [None]
  - PNEUMONITIS [None]
